FAERS Safety Report 7035038-1 (Version None)
Quarter: 2010Q4

REPORT INFORMATION
  Report Type: 
  Country: None (occurrence: None)
  Receive Date: 20101008
  Receipt Date: 20101004
  Transmission Date: 20110411
  Serious: Yes (Other)
  Sender: FDA-Public Use
  Company Number: DZ-ROCHE-731338

PATIENT
  Sex: Female

DRUGS (2)
  1. HERCEPTIN [Suspect]
     Indication: PRODUCT USED FOR UNKNOWN INDICATION
     Route: 042
  2. ANTHRACYCLINE NOS [Concomitant]
     Dosage: DRUG REPORTED: ANTHRACYCLINS.  FREQUENCY: 9 CURES.

REACTIONS (1)
  - CARDIOTOXICITY [None]
